FAERS Safety Report 6971432-2 (Version None)
Quarter: 2010Q3

REPORT INFORMATION
  Report Type: 
  Country: None (occurrence: None)
  Receive Date: 20100903
  Receipt Date: 20100830
  Transmission Date: 20110219
  Serious: Yes (Death)
  Sender: FDA-Public Use
  Company Number: OSCN-PR-1008S-0234

PATIENT
  Sex: Female

DRUGS (1)
  1. OMNISCAN [Suspect]
     Indication: PRODUCT USED FOR UNKNOWN INDICATION
     Dates: start: 20050722, end: 20050722

REACTIONS (1)
  - NEPHROGENIC SYSTEMIC FIBROSIS [None]
